FAERS Safety Report 8065231-0 (Version None)
Quarter: 2012Q1

REPORT INFORMATION
  Report Type: 
  Country: None (occurrence: None)
  Receive Date: 20120124
  Receipt Date: 20120116
  Transmission Date: 20120608
  Serious: Yes (Other)
  Sender: FDA-Public Use
  Company Number: US-BAYER-2011-055146

PATIENT
  Age: 44 Year
  Sex: Female
  Weight: 81.633 kg

DRUGS (7)
  1. DYAZIDE [Concomitant]
     Dosage: UNK
     Route: 048
     Dates: start: 20091119
  2. DROSPIRENONE AND ETHINYL ESTRADIOL [Suspect]
     Indication: CONTRACEPTION
     Dosage: UNK
     Dates: start: 20090601, end: 20091101
  3. LEVOTHYROXINE SODIUM [Concomitant]
     Dosage: 0.025 MCG, QD
     Route: 048
     Dates: start: 20070101
  4. BENZONATATE [Concomitant]
     Dosage: 100 MG, TID
     Route: 048
     Dates: start: 20090921
  5. METOPROLOL [Concomitant]
     Dosage: 25 MG, BID
     Route: 048
     Dates: start: 19960101
  6. BACTRIM [Concomitant]
     Dosage: UNK UNK, BID
     Route: 048
     Dates: start: 20091201
  7. TRIAMTERENE [Concomitant]
     Dosage: 37.5/25
     Route: 048
     Dates: start: 19960101

REACTIONS (10)
  - ANHEDONIA [None]
  - PULMONARY EMBOLISM [None]
  - PAIN [None]
  - CHOLECYSTITIS CHRONIC [None]
  - FEAR [None]
  - MYOCARDIAL INFARCTION [None]
  - CEREBROVASCULAR ACCIDENT [None]
  - GALLBLADDER DISORDER [None]
  - DEEP VEIN THROMBOSIS [None]
  - ANXIETY [None]
